FAERS Safety Report 6021996-0 (Version None)
Quarter: 2008Q4

REPORT INFORMATION
  Report Type: 
  Country: None (occurrence: None)
  Receive Date: 20081229
  Receipt Date: 20081219
  Transmission Date: 20090506
  Serious: Yes (Hospitalization)
  Sender: FDA-Public Use
  Company Number: US-ABBOTT-08P-163-0493945-00

PATIENT
  Sex: Female
  Weight: 63.56 kg

DRUGS (6)
  1. HUMIRA [Suspect]
     Indication: RHEUMATOID ARTHRITIS
     Route: 058
     Dates: start: 20060101, end: 20081201
  2. HUMIRA [Suspect]
     Route: 058
  3. VERAPAMIL [Concomitant]
     Indication: HYPERTENSION
     Route: 048
  4. TARMADOL [Concomitant]
     Indication: PAIN
  5. UNNAMED MEDICATION [Concomitant]
     Indication: INFLAMMATION
  6. SULENDAC [Concomitant]
     Indication: PAIN

REACTIONS (8)
  - ABASIA [None]
  - ARTHRALGIA [None]
  - FOOD POISONING [None]
  - INFLAMMATION [None]
  - MOBILITY DECREASED [None]
  - NAUSEA [None]
  - SLEEP APNOEA SYNDROME [None]
  - VOMITING [None]
